FAERS Safety Report 7492792-2 (Version None)
Quarter: 2011Q2

REPORT INFORMATION
  Report Type: 
  Country: None (occurrence: None)
  Receive Date: 20110519
  Receipt Date: 20110510
  Transmission Date: 20111010
  Serious: Yes (Other)
  Sender: FDA-Public Use
  Company Number: US-BAYER-2011-040015

PATIENT
  Age: 38 Year
  Sex: Male

DRUGS (2)
  1. POLY-VENT [Concomitant]
  2. AVELOX [Suspect]
     Indication: SINUSITIS
     Dosage: UNK
     Route: 048
     Dates: start: 20110121, end: 20110121

REACTIONS (5)
  - NAUSEA [None]
  - HYPERHIDROSIS [None]
  - THROAT TIGHTNESS [None]
  - HYPERSENSITIVITY [None]
  - FLUSHING [None]
